FAERS Safety Report 4715240-1 (Version None)
Quarter: 2005Q2

REPORT INFORMATION
  Report Type: 
  Country: None (occurrence: None)
  Receive Date: 20050630
  Receipt Date: 20050308
  Transmission Date: 20051028
  Serious: No
  Sender: FDA-Public Use
  Company Number: 212937

PATIENT
  Age: 56 Year
  Sex: Female
  Weight: 137 kg

DRUGS (4)
  1. AVASTIN [Suspect]
     Indication: COLON CANCER METASTATIC
     Dosage: 685 MG, Q2W, INTRAVENOUS
     Route: 042
     Dates: start: 20050302
  2. LEUCOVORIN CALCIUM [Concomitant]
  3. 5-FU (FLUOROURACIL) [Concomitant]
  4. OXALIPLATIN [Concomitant]

REACTIONS (1)
  - ABDOMINAL PAIN [None]
